FAERS Safety Report 10045722 (Version 1)
Quarter: 2014Q1

REPORT INFORMATION
  Report Type: Spontaneous
  Country: US (occurrence: None)
  Receive Date: 20140306
  Receipt Date: 20140306
  Transmission Date: 20141002
  Serious: Yes (Hospitalization)
  Sender: FDA-Public Use
  Company Number: 163-21880-13054930

PATIENT
  Age: 67 Year
  Sex: Female

DRUGS (9)
  1. REVLIMID (LENALIDOMIDE) (25 MILLIGRAM, CAPSULES) [Suspect]
     Indication: PLASMA CELL MYELOMA
     Dosage: 25 MG, 21 IN 28 D, PO
     Route: 048
     Dates: start: 2008
  2. VICODIN (VICODIN) (TABLETS) [Concomitant]
  3. K-DUR (POTASSIUM CHLORIDE) (TABLETS) [Concomitant]
  4. ZOLPIDEM (ZOLPIDEM) (TABLETS) [Concomitant]
  5. DEXAMETHASONE (DEXAMETHASONE) (TABLETS) [Concomitant]
  6. ACYCLOVIR (ACICLOVIR) (TABLETS) [Concomitant]
  7. FUROSEMIDE (FUROSEMIDE) (TABLETS) [Concomitant]
  8. METOPROLOL (METOPROLOL) (TABLETS) [Concomitant]
  9. AMIODARONE (AMIODARONE) (TABLETS) [Concomitant]

REACTIONS (1)
  - Infection [None]
